FAERS Safety Report 7931687-4 (Version None)
Quarter: 2011Q4

REPORT INFORMATION
  Report Type: 
  Country: None (occurrence: None)
  Receive Date: 20111121
  Receipt Date: 20111114
  Transmission Date: 20120403
  Serious: Yes (Other)
  Sender: FDA-Public Use
  Company Number: PHHY2011NO100300

PATIENT
  Sex: Female

DRUGS (1)
  1. VOLTAREN [Suspect]
     Indication: NECK PAIN
     Dosage: 150 MG, UNK
     Route: 048

REACTIONS (5)
  - INCORRECT DOSE ADMINISTERED [None]
  - BLOOD TRIGLYCERIDES INCREASED [None]
  - CEREBRAL INFARCTION [None]
  - BETA-2 GLYCOPROTEIN ANTIBODY POSITIVE [None]
  - PULMONARY VALVE INCOMPETENCE [None]
